FAERS Safety Report 4425387-5 (Version None)
Quarter: 2004Q3

REPORT INFORMATION
  Report Type: 
  Country: None (occurrence: None)
  Receive Date: 20040813
  Receipt Date: 20040526
  Transmission Date: 20050211
  Serious: Yes (Other)
  Sender: FDA-Public Use
  Company Number: JP-GLAXOSMITHKLINE-B0333816A

PATIENT
  Age: 50 Year
  Sex: Female
  Weight: 52 kg

DRUGS (10)
  1. VALTREX [Suspect]
     Indication: HERPES ZOSTER
     Dosage: 1000MG THREE TIMES PER DAY
     Route: 048
     Dates: start: 20040401, end: 20040410
  2. NOLVADEX [Suspect]
     Indication: BREAST CANCER
     Dosage: 10MG TWICE PER DAY
     Route: 048
     Dates: start: 20040320, end: 20040517
  3. LEUPROLIDE ACETATE [Suspect]
     Indication: BREAST CANCER
     Dosage: 3.75MG PER DAY
     Route: 058
     Dates: start: 20040401, end: 20040401
  4. LEUPROLIDE ACETATE [Suspect]
     Dosage: 3.75MG PER DAY
     Route: 058
     Dates: start: 20040506, end: 20040506
  5. CALONAL [Suspect]
     Indication: HERPES ZOSTER
     Dosage: 400MG THREE TIMES PER DAY
     Route: 048
     Dates: start: 20040401, end: 20040413
  6. MARCAINE [Suspect]
     Indication: HERPES ZOSTER
     Dosage: 120MG PER DAY
     Route: 008
     Dates: start: 20040401, end: 20040417
  7. NORITREN [Suspect]
     Indication: HERPES ZOSTER
     Route: 048
     Dates: start: 20040408, end: 20040517
  8. VOLTAREN [Concomitant]
     Dosage: 25MG PER DAY
     Route: 054
     Dates: start: 20040402
  9. LENDORM [Concomitant]
     Dosage: 1U PER DAY
     Route: 048
     Dates: start: 20040417
  10. LOXONIN [Concomitant]
     Dosage: 3 PER DAY
     Route: 048
     Dates: start: 20040425, end: 20040426

REACTIONS (2)
  - JAUNDICE [None]
  - LIVER DISORDER [None]
